FAERS Safety Report 15259632 (Version 1)
Quarter: 2018Q3

REPORT INFORMATION
  Report Type: Spontaneous
  Country: CN (occurrence: CN)
  Receive Date: 20180809
  Receipt Date: 20180809
  Transmission Date: 20181010
  Serious: Yes (Hospitalization)
  Sender: FDA-Public Use
  Company Number: CN-BAYER-2018-145217

PATIENT
  Age: 71 Year
  Sex: Female

DRUGS (3)
  1. CEFACLOR. [Concomitant]
     Active Substance: CEFACLOR
  2. WARFARIN SODIUM. [Suspect]
     Active Substance: WARFARIN SODIUM
     Indication: ATRIAL FIBRILLATION
     Dosage: 3 MG, QD
     Route: 048
     Dates: start: 20180201, end: 20180605
  3. BAYASPIRIN 100 MG [Suspect]
     Active Substance: ASPIRIN
     Indication: CORONARY ARTERY DISEASE
     Dosage: 100 MG, QD
     Route: 048
     Dates: start: 20180201, end: 20180605

REACTIONS (6)
  - Lip haemorrhage [Recovering/Resolving]
  - Coagulopathy [Recovering/Resolving]
  - Haematuria [Recovering/Resolving]
  - Ecchymosis [Recovering/Resolving]
  - Tongue haemorrhage [Recovering/Resolving]
  - Faeces discoloured [Recovering/Resolving]

NARRATIVE: CASE EVENT DATE: 20180605
